FAERS Safety Report 23149015 (Version 1)
Quarter: 2023Q4

REPORT INFORMATION
  Report Type: Other
  Country: US (occurrence: None)
  Receive Date: 20231106
  Receipt Date: 20231106
  Transmission Date: 20240109
  Serious: Yes (Hospitalization)
  Sender: FDA-Public Use
  Company Number: US-ROCHE-3447957

PATIENT
  Age: 58 Year
  Sex: Female
  Weight: 104.42 kg

DRUGS (11)
  1. OCREVUS [Suspect]
     Active Substance: OCRELIZUMAB
     Indication: Relapsing-remitting multiple sclerosis
     Route: 042
     Dates: start: 20220615
  2. OZEMPIC [Concomitant]
     Active Substance: SEMAGLUTIDE
  3. KEPPRA [Concomitant]
     Active Substance: LEVETIRACETAM
     Dosage: 500 MG TAB, ORAL
  4. MECLIZINE HYDROCHLORIDE [Concomitant]
     Active Substance: MECLIZINE HYDROCHLORIDE
  5. FUROSEMIDE [Concomitant]
     Active Substance: FUROSEMIDE
     Dosage: 40 MG TAB ORAL DAILY
  6. EPIPEN [Concomitant]
     Active Substance: EPINEPHRINE
  7. ABILIFY [Concomitant]
     Active Substance: ARIPIPRAZOLE
     Dosage: 30 MG TAB, ORAL DAILY
  8. URIBEL [Concomitant]
     Active Substance: HYOSCYAMINE SULFATE\METHENAMINE\METHYLENE BLUE\PHENYL SALICYLATE\SODIUM PHOSPHATE, MONOBASIC, MONOHY
     Dosage: 118 MG CAP, ORAL
  9. BUSPIRONE [Concomitant]
     Active Substance: BUSPIRONE HYDROCHLORIDE
     Dosage: 7.5 MG TAB
  10. BUSPIRONE [Concomitant]
     Active Substance: BUSPIRONE HYDROCHLORIDE
     Dosage: 15 MG TAB
  11. TRAZODONE HCL [Concomitant]
     Active Substance: TRAZODONE HYDROCHLORIDE
     Dosage: 50 MG TAB, ORAL

REACTIONS (11)
  - Decubitus ulcer [Not Recovered/Not Resolved]
  - White blood cell count increased [Unknown]
  - Diabetes mellitus [Not Recovered/Not Resolved]
  - Infection [Not Recovered/Not Resolved]
  - Dehydration [Unknown]
  - Decubitus ulcer [Unknown]
  - Infected skin ulcer [Unknown]
  - Headache [Unknown]
  - Photosensitivity reaction [Unknown]
  - Incontinence [Unknown]
  - Anxiety [Unknown]

NARRATIVE: CASE EVENT DATE: 20230801
